FAERS Safety Report 16831321 (Version 1)
Quarter: 2019Q3

REPORT INFORMATION
  Report Type: Spontaneous
  Country: US (occurrence: US)
  Receive Date: 20190730
  Receipt Date: 20190730
  Transmission Date: 20191005
  Serious: Yes (Hospitalization)
  Sender: FDA-Public Use
  Company Number: None

PATIENT
  Age: 34 Year

DRUGS (4)
  1. MEDROXYPROGESTERONE [Concomitant]
     Active Substance: MEDROXYPROGESTERONE
  2. ORILISSA [Concomitant]
     Active Substance: ELAGOLIX SODIUM
  3. SILDENAFIL 20MG [Suspect]
     Active Substance: SILDENAFIL
     Indication: RIGHT-TO-LEFT CARDIAC SHUNT
     Route: 048
  4. LORATADINE. [Concomitant]
     Active Substance: LORATADINE

REACTIONS (1)
  - No adverse event [None]

NARRATIVE: CASE EVENT DATE: 20190729
